FAERS Safety Report 21223077 (Version 1)
Quarter: 2022Q3

REPORT INFORMATION
  Report Type: Spontaneous
  Country: US (occurrence: US)
  Receive Date: 20220817
  Receipt Date: 20220817
  Transmission Date: 20221026
  Serious: No
  Sender: FDA-Public Use
  Company Number: US-PFIZER INC-202201060414

PATIENT
  Age: 63 Year
  Sex: Female
  Weight: 58.97 kg

DRUGS (1)
  1. PAXLOVID [Suspect]
     Active Substance: NIRMATRELVIR\RITONAVIR
     Indication: COVID-19
     Dosage: 400 MG, 2X/DAY
     Dates: start: 20220811

REACTIONS (8)
  - Oropharyngeal pain [Not Recovered/Not Resolved]
  - Throat tightness [Unknown]
  - Dysphonia [Unknown]
  - Dysphagia [Unknown]
  - Odynophagia [Unknown]
  - Dyspnoea [Unknown]
  - Drug hypersensitivity [Unknown]
  - Pyrexia [Recovering/Resolving]
